FAERS Safety Report 21166576 (Version 1)
Quarter: 2022Q3

REPORT INFORMATION
  Report Type: Spontaneous
  Country: US (occurrence: US)
  Receive Date: 20220803
  Receipt Date: 20220803
  Transmission Date: 20221026
  Serious: Yes (Other)
  Sender: FDA-Public Use
  Company Number: US-VIIV HEALTHCARE LIMITED-US2022112736

PATIENT

DRUGS (2)
  1. VOCABRIA [Suspect]
     Active Substance: CABOTEGRAVIR SODIUM
     Indication: HIV test
     Dosage: 1 DF, QD
     Route: 048
     Dates: start: 20220705
  2. EDURANT [Suspect]
     Active Substance: RILPIVIRINE HYDROCHLORIDE
     Indication: HIV test
     Dosage: 1 DF, QD
     Route: 048
     Dates: start: 20220705

REACTIONS (1)
  - Monkeypox [Not Recovered/Not Resolved]

NARRATIVE: CASE EVENT DATE: 20220701
